FAERS Safety Report 5470649-6 (Version None)
Quarter: 2007Q3

REPORT INFORMATION
  Report Type: 
  Country: None (occurrence: None)
  Receive Date: 20070928
  Receipt Date: 20070919
  Transmission Date: 20080115
  Serious: Yes (Hospitalization)
  Sender: FDA-Public Use
  Company Number: ES-JNJFOC-20070904157

PATIENT
  Age: 62 Year
  Sex: Male

DRUGS (1)
  1. REMICADE [Suspect]
     Indication: SPONDYLOARTHROPATHY
     Route: 042

REACTIONS (3)
  - ABDOMINAL PAIN [None]
  - ASCITES [None]
  - PYREXIA [None]
